FAERS Safety Report 6431901-0 (Version None)
Quarter: 2009Q4

REPORT INFORMATION
  Report Type: 
  Country: None (occurrence: None)
  Receive Date: 20091109
  Receipt Date: 20091030
  Transmission Date: 20100525
  Serious: Yes (Hospitalization)
  Sender: FDA-Public Use
  Company Number: US-BIOGENIDEC-2009BI033290

PATIENT
  Age: 52 Year
  Sex: Female

DRUGS (11)
  1. TYSABRI [Suspect]
     Indication: MULTIPLE SCLEROSIS
     Route: 042
     Dates: start: 20071204
  2. ELAVIL [Concomitant]
  3. ATENOLOL [Concomitant]
  4. BACLOFEN [Concomitant]
  5. TEGRETOL [Concomitant]
  6. CITALOPRAM [Concomitant]
  7. KLONOPIN [Concomitant]
  8. FLEXERIL [Concomitant]
  9. PROVIGIL [Concomitant]
  10. PROTONIX [Concomitant]
  11. TIZANADINE [Concomitant]

REACTIONS (4)
  - INTERVERTEBRAL DISC PROTRUSION [None]
  - LIGAMENT RUPTURE [None]
  - NECK PAIN [None]
  - ROAD TRAFFIC ACCIDENT [None]
